FAERS Safety Report 6068886-5 (Version None)
Quarter: 2009Q1

REPORT INFORMATION
  Report Type: 
  Country: None (occurrence: None)
  Receive Date: 20090206
  Receipt Date: 20090123
  Transmission Date: 20090719
  Serious: Yes (Other)
  Sender: FDA-Public Use
  Company Number: JP-PFIZER INC-2009162165

PATIENT

DRUGS (1)
  1. XALATAN [Suspect]
     Route: 031

REACTIONS (2)
  - CATARACT OPERATION [None]
  - EYE PAIN [None]
